FAERS Safety Report 9774394 (Version 2)
Quarter: 2014Q1

REPORT INFORMATION
  Report Type: Spontaneous
  Country: SE (occurrence: SE)
  Receive Date: 20131220
  Receipt Date: 20140218
  Transmission Date: 20141002
  Serious: Yes (Disabling, Other)
  Sender: FDA-Public Use
  Company Number: SE-009507513-1312SWE008259

PATIENT
  Age: 81 Year
  Sex: Female

DRUGS (9)
  1. FOSAMAX VECKOTABLETT 70 MG TABLETTER [Suspect]
     Indication: OSTEOPOROSIS
     Dosage: 70 MG, QW
     Route: 048
     Dates: start: 20080806, end: 20100322
  2. ALENAT [Suspect]
     Indication: OSTEOPOROSIS
     Dosage: UNK
     Route: 048
     Dates: end: 20110523
  3. LEVAXIN [Concomitant]
     Dosage: UNK
  4. ARTROX [Concomitant]
     Dosage: UNK
  5. OXASCAND [Concomitant]
     Dosage: UNK
  6. DOLCONTIN (MORPHINE SULFATE) [Concomitant]
     Dosage: UNK, FORMULATION: DEPOT GRANULES FOR ORAL SUSPENSION IN SACHET
  7. TEGRETOL [Concomitant]
  8. REMINYL [Concomitant]
     Dosage: UNK
  9. FOLACIN [Concomitant]
     Dosage: UNK

REACTIONS (1)
  - Osteonecrosis [Recovered/Resolved with Sequelae]
